FAERS Safety Report 5731028-7 (Version None)
Quarter: 2008Q2

REPORT INFORMATION
  Report Type: 
  Country: None (occurrence: None)
  Receive Date: 20080505
  Receipt Date: 20080424
  Transmission Date: 20081010
  Serious: Yes (Hospitalization)
  Sender: FDA-Public Use
  Company Number: 163-21880-08041752

PATIENT
  Age: 74 Year
  Sex: Male

DRUGS (3)
  1. REVLIMID [Suspect]
     Indication: IRON DEFICIENCY ANAEMIA
     Dosage: 10 MG, QHS , ORAL
     Route: 048
     Dates: start: 20080228
  2. REVLIMID [Suspect]
     Indication: MYELODYSPLASTIC SYNDROME
     Dosage: 10 MG, QHS , ORAL
     Route: 048
     Dates: start: 20080228
  3. REVLIMID [Suspect]
     Indication: RENAL TRANSPLANT
     Dosage: 10 MG, QHS , ORAL
     Route: 048
     Dates: start: 20080228

REACTIONS (5)
  - HEADACHE [None]
  - MUSCULOSKELETAL PAIN [None]
  - NECK PAIN [None]
  - NEUROMA [None]
  - SPONDYLITIS [None]
